FAERS Safety Report 9133662 (Version 1)
Quarter: 2013Q1

REPORT INFORMATION
  Report Type: Report from Study
  Country: AT (occurrence: AT)
  Receive Date: 20130301
  Receipt Date: 20130301
  Transmission Date: 20140127
  Serious: Yes (Hospitalization)
  Sender: FDA-Public Use
  Company Number: PHHO2011AT16674

PATIENT
  Age: 67 Year
  Sex: Male
  Weight: 110 kg

DRUGS (3)
  1. PROGRAF [Suspect]
     Indication: RENAL TRANSPLANT
     Dosage: PRN, BID
     Route: 048
     Dates: start: 20110122
  2. MYFORTIC [Suspect]
     Dosage: PRN, BID
     Route: 048
     Dates: start: 20110122
  3. APREDNISLON [Suspect]
     Indication: RENAL TRANSPLANT
     Dosage: PRN, BID
     Route: 048
     Dates: start: 20110123

REACTIONS (1)
  - Keratoacanthoma [Unknown]
